FAERS Safety Report 17280467 (Version 2)
Quarter: 2022Q1

REPORT INFORMATION
  Report Type: Spontaneous
  Country: US (occurrence: US)
  Receive Date: 20200117
  Receipt Date: 20220223
  Transmission Date: 20220423
  Serious: No
  Sender: FDA-Public Use
  Company Number: US-UCBSA-2019020875

PATIENT
  Sex: Male
  Weight: 14.9 kg

DRUGS (3)
  1. KEPPRA [Suspect]
     Active Substance: LEVETIRACETAM
     Indication: Seizure
     Dosage: 4ML , 2X/DAY (BID)
     Dates: start: 201809, end: 201903
  2. TRILEPTAL [Suspect]
     Active Substance: OXCARBAZEPINE
     Indication: Product used for unknown indication
     Dosage: UNK UNK, 2X/DAY (BID)
     Dates: start: 201901, end: 2019
  3. DIASTAT [Concomitant]
     Active Substance: DIAZEPAM
     Indication: Seizure
     Dosage: UNK
     Dates: end: 2019

REACTIONS (4)
  - Hypersensitivity [Unknown]
  - Seizure [Recovered/Resolved]
  - Aggression [Recovered/Resolved]
  - Rash [Unknown]

NARRATIVE: CASE EVENT DATE: 20180101
